FAERS Safety Report 12203949 (Version 1)
Quarter: 2016Q1

REPORT INFORMATION
  Report Type: Spontaneous
  Country: US (occurrence: None)
  Receive Date: 20160322
  Receipt Date: 20160322
  Transmission Date: 20160526
  Serious: Yes (Life-Threatening, Hospitalization, Disabling)
  Sender: FDA-Public Use
  Company Number: None

PATIENT
  Age: 66 Year
  Sex: Male
  Weight: 81.4 kg

DRUGS (16)
  1. RITUXIMAB [Suspect]
     Active Substance: RITUXIMAB
     Indication: FOCAL SEGMENTAL GLOMERULOSCLEROSIS
     Route: 042
     Dates: start: 20140912, end: 20140912
  2. BELATACEPT [Suspect]
     Active Substance: BELATACEPT
     Indication: IMMUNOSUPPRESSION
     Dosage: 5 MG/KG/DOSE Q28DAYS INTRAVENOUS
     Route: 042
     Dates: start: 20150130, end: 20160316
  3. ALEMTUZUMAB [Concomitant]
     Active Substance: ALEMTUZUMAB
  4. MYCOPHENOLATE MOFETIL. [Concomitant]
     Active Substance: MYCOPHENOLATE MOFETIL
  5. TACROLIMUS. [Concomitant]
     Active Substance: TACROLIMUS
  6. RITUXIMAB [Suspect]
     Active Substance: RITUXIMAB
     Indication: DISEASE RECURRENCE
     Route: 042
     Dates: start: 20140912, end: 20140912
  7. CYCLOBENZAPRINE [Concomitant]
     Active Substance: CYCLOBENZAPRINE
  8. ERGOCALCIFEROL. [Concomitant]
     Active Substance: ERGOCALCIFEROL
  9. PLASMAPHERESIS [Concomitant]
     Active Substance: UNSPECIFIED INGREDIENT
  10. METOPROLOL. [Concomitant]
     Active Substance: METOPROLOL
  11. NIFEDIPINE. [Concomitant]
     Active Substance: NIFEDIPINE
  12. DARBEPOETIN [Concomitant]
     Active Substance: DARBEPOETIN ALFA
  13. HYDRALAZINE [Concomitant]
     Active Substance: HYDRALAZINE HYDROCHLORIDE
  14. PREDNISONE. [Concomitant]
     Active Substance: PREDNISONE
  15. CYCLOSPORINE (MODIFIED) [Concomitant]
  16. PANTOPRAZOLE [Concomitant]
     Active Substance: PANTOPRAZOLE SODIUM

REACTIONS (6)
  - JC virus test positive [None]
  - Progressive multifocal leukoencephalopathy [None]
  - Cerebrovascular accident [None]
  - Cerebral arteriosclerosis [None]
  - Spinal osteoarthritis [None]
  - Hypothalamo-pituitary disorder [None]

NARRATIVE: CASE EVENT DATE: 20160316
